FAERS Safety Report 15462092 (Version 2)
Quarter: 2019Q1

REPORT INFORMATION
  Report Type: Spontaneous
  Country: DE (occurrence: DE)
  Receive Date: 20181004
  Receipt Date: 20190213
  Transmission Date: 20190417
  Serious: Yes (Life-Threatening, Hospitalization, Other)
  Sender: FDA-Public Use
  Company Number: DE-AUROBINDO-AUR-APL-2015-03074

PATIENT

DRUGS (8)
  1. PREGABALIN. [Suspect]
     Active Substance: PREGABALIN
     Indication: FOCAL DYSCOGNITIVE SEIZURES
     Dosage: 150 MG, DAILY
     Route: 065
  2. NUROFEN [Suspect]
     Active Substance: IBUPROFEN
     Indication: PRODUCT USED FOR UNKNOWN INDICATION
     Dosage: UNK
     Route: 065
  3. IBUPROFEN. [Suspect]
     Active Substance: IBUPROFEN
     Indication: PRODUCT USED FOR UNKNOWN INDICATION
     Dosage: UNK
     Route: 065
  4. PREGABALIN. [Suspect]
     Active Substance: PREGABALIN
     Indication: DEPRESSION
  5. TIAPRID [Concomitant]
     Active Substance: TIAPRIDE HYDROCHLORIDE
     Indication: DYSKINESIA
     Dosage: UNK
     Route: 065
  6. PREGABALIN. [Suspect]
     Active Substance: PREGABALIN
     Indication: DYSKINESIA
  7. ALCOHOL. [Suspect]
     Active Substance: ALCOHOL
     Indication: PRODUCT USED FOR UNKNOWN INDICATION
     Dosage: UNK
     Route: 065
  8. ASPIRIN. [Suspect]
     Active Substance: ASPIRIN
     Indication: PRODUCT USED FOR UNKNOWN INDICATION
     Dosage: UNK
     Route: 065

REACTIONS (16)
  - Suicide attempt [Recovered/Resolved]
  - Suicidal ideation [Recovered/Resolved]
  - Overdose [Unknown]
  - Sleep disorder [Recovered/Resolved]
  - Apathy [Recovered/Resolved]
  - Feeling of despair [Recovering/Resolving]
  - Intentional overdose [Recovered/Resolved]
  - Depressed mood [Recovered/Resolved]
  - Anxiety [Recovered/Resolved]
  - Thinking abnormal [Unknown]
  - Depression [Recovered/Resolved]
  - Depressive symptom [Recovering/Resolving]
  - Condition aggravated [Recovering/Resolving]
  - Major depression [Unknown]
  - Intentional product misuse [Recovered/Resolved]
  - Toxicity to various agents [Unknown]
